FAERS Safety Report 15953729 (Version 2)
Quarter: 2019Q1

REPORT INFORMATION
  Report Type: Spontaneous
  Country: JP (occurrence: JP)
  Receive Date: 20190212
  Receipt Date: 20190225
  Transmission Date: 20190417
  Serious: Yes (Hospitalization)
  Sender: FDA-Public Use
  Company Number: JP-OTSUKA-2018_040460

PATIENT
  Age: 36 Year
  Sex: Male

DRUGS (5)
  1. ABILIFY [Suspect]
     Active Substance: ARIPIPRAZOLE
     Dosage: 12 MG, QD
     Route: 048
     Dates: start: 20170913, end: 20170919
  2. ABILIFY [Suspect]
     Active Substance: ARIPIPRAZOLE
     Dosage: 24 MG, QD
     Route: 048
     Dates: start: 20170919, end: 20180529
  3. ABILIFY [Suspect]
     Active Substance: ARIPIPRAZOLE
     Dosage: 18 MG, QD
     Route: 048
     Dates: start: 20180530, end: 20180710
  4. REXULTI [Concomitant]
     Active Substance: BREXPIPRAZOLE
     Indication: PRODUCT USED FOR UNKNOWN INDICATION
     Dosage: 1 MG, QD
     Route: 048
     Dates: start: 20181003, end: 20181027
  5. ABILIFY [Suspect]
     Active Substance: ARIPIPRAZOLE
     Indication: SCHIZOPHRENIA
     Dosage: 12 MG, QD
     Route: 048
     Dates: start: 20180711

REACTIONS (3)
  - Hyperlipidaemia [Unknown]
  - Type 2 diabetes mellitus [Recovered/Resolved]
  - Liver disorder [Unknown]

NARRATIVE: CASE EVENT DATE: 20181226
